FAERS Safety Report 4361473-6 (Version None)
Quarter: 2004Q2

REPORT INFORMATION
  Report Type: 
  Country: None (occurrence: None)
  Receive Date: 20040521
  Receipt Date: 20030807
  Transmission Date: 20050107
  Serious: No
  Sender: FDA-Public Use
  Company Number: US-GLAXOSMITHKLINE-A0422160A

PATIENT
  Age: 49 Year
  Sex: Male

DRUGS (2)
  1. ZYBAN [Suspect]
     Dosage: 150MG IN THE MORNING
     Route: 048
     Dates: start: 20030805
  2. CHEWING TOBACCO [Concomitant]
     Route: 048

REACTIONS (10)
  - CONSTIPATION [None]
  - DRY MOUTH [None]
  - FEELING ABNORMAL [None]
  - HALLUCINATION [None]
  - HEADACHE [None]
  - HYPERACUSIS [None]
  - KERATOCONJUNCTIVITIS SICCA [None]
  - NERVOUSNESS [None]
  - OILY SKIN [None]
  - PARAESTHESIA [None]
